FAERS Safety Report 10559926 (Version 1)
Quarter: 2014Q4

REPORT INFORMATION
  Report Type: Spontaneous
  Country: US (occurrence: None)
  Receive Date: 20141031
  Receipt Date: 20141031
  Transmission Date: 20150529
  Serious: Yes (Life-Threatening, Disabling)
  Sender: FDA-Public Use
  Company Number: None

PATIENT
  Age: 46 Year
  Sex: Female
  Weight: 66.23 kg

DRUGS (2)
  1. DEXILANT [Suspect]
     Active Substance: DEXLANSOPRAZOLE
  2. OMEPRAZOLE 20MG [Suspect]
     Active Substance: OMEPRAZOLE

REACTIONS (6)
  - Abdominal distension [None]
  - Eructation [None]
  - Abdominal pain upper [None]
  - Nightmare [None]
  - Impaired gastric emptying [None]
  - Gastric pH decreased [None]

NARRATIVE: CASE EVENT DATE: 20131101
